FAERS Safety Report 13620765 (Version 2)
Quarter: 2017Q2

REPORT INFORMATION
  Report Type: Spontaneous
  Country: SE (occurrence: SE)
  Receive Date: 20170607
  Receipt Date: 20170620
  Transmission Date: 20170830
  Serious: Yes (Death, Life-Threatening, Other)
  Sender: FDA-Public Use
  Company Number: SE-AUROBINDO-AUR-APL-2017-35040

PATIENT
  Age: 20 Year
  Sex: Female

DRUGS (1)
  1. TRAMADOL. [Suspect]
     Active Substance: TRAMADOL
     Indication: PRODUCT USED FOR UNKNOWN INDICATION
     Route: 065

REACTIONS (5)
  - Accidental exposure to product [Unknown]
  - Pulmonary oedema [Fatal]
  - Brain oedema [Fatal]
  - Visceral congestion [Fatal]
  - Toxicity to various agents [Fatal]
